FAERS Safety Report 21502525 (Version 1)
Quarter: 2022Q4

REPORT INFORMATION
  Report Type: Spontaneous
  Country: US (occurrence: US)
  Receive Date: 20221025
  Receipt Date: 20221025
  Transmission Date: 20230113
  Serious: No
  Sender: FDA-Public Use
  Company Number: US-BAYER-2022A144183

PATIENT
  Sex: Female

DRUGS (1)
  1. ESTRADIOL [Suspect]
     Active Substance: ESTRADIOL
     Dosage: 0.1MG/1D 4TTSM US
     Route: 062

REACTIONS (4)
  - Device adhesion issue [None]
  - Wrong technique in device usage process [None]
  - Hot flush [None]
  - Headache [None]
